FAERS Safety Report 23384739 (Version 2)
Quarter: 2024Q1

REPORT INFORMATION
  Report Type: Report from Study
  Country: CO (occurrence: CO)
  Receive Date: 20240109
  Receipt Date: 20240117
  Transmission Date: 20240410
  Serious: Yes (Hospitalization, Other)
  Sender: FDA-Public Use
  Company Number: CO-Merck Healthcare KGaA-2023484890

PATIENT
  Age: 43 Year
  Sex: Female

DRUGS (7)
  1. CETUXIMAB [Suspect]
     Active Substance: CETUXIMAB
     Indication: Malignant neoplasm of lacrimal duct
     Dosage: 385 MG, WEEKLY (1/W)
     Route: 042
     Dates: start: 20230412
  2. GEMCITABINE HYDROCHLORIDE [Suspect]
     Active Substance: GEMCITABINE HYDROCHLORIDE
     Indication: Malignant neoplasm of lacrimal duct
     Dosage: UNK UNK, UNKNOWN
     Route: 065
  3. CARBOPLATIN [Suspect]
     Active Substance: CARBOPLATIN
     Indication: Malignant neoplasm of lacrimal duct
     Dosage: UNK UNK, UNKNOWN
     Route: 065
  4. ONDANSETRON [Concomitant]
     Active Substance: ONDANSETRON
     Indication: Premedication
     Dosage: UNK
  5. DEXAMETHASONE [Concomitant]
     Active Substance: DEXAMETHASONE
     Indication: Premedication
     Dosage: UNK
  6. FOSAPREPITANT [Concomitant]
     Active Substance: FOSAPREPITANT
     Indication: Premedication
     Dosage: UNK
  7. PEGFILGRASTIM [Concomitant]
     Active Substance: PEGFILGRASTIM
     Indication: Premedication
     Dosage: UNK

REACTIONS (4)
  - Myiasis [Not Recovered/Not Resolved]
  - Hypotension [Not Recovered/Not Resolved]
  - Weight decreased [Not Recovered/Not Resolved]
  - Off label use [Unknown]
